FAERS Safety Report 6612445-X (Version None)
Quarter: 2010Q1

REPORT INFORMATION
  Report Type: 
  Country: None (occurrence: None)
  Receive Date: 20100303
  Receipt Date: 20100301
  Transmission Date: 20100710
  Serious: Yes (Other)
  Sender: FDA-Public Use
  Company Number: PHEH2010US02639

PATIENT
  Sex: Female
  Weight: 72.018 kg

DRUGS (9)
  1. FEMARA [Suspect]
     Indication: BREAST CANCER METASTATIC
     Dosage: 2.5 MG, QD
     Route: 048
  2. AMLODIPINE [Concomitant]
     Indication: HYPERTENSION
     Dosage: UNK, QD
     Route: 048
  3. ASPIRIN [Concomitant]
     Dosage: 81 MG, QD
     Route: 065
     Dates: start: 20080108
  4. LEXAPRO [Concomitant]
     Indication: DEPRESSION
     Dosage: 10 MG, QD
     Route: 048
     Dates: start: 20091217
  5. OXYCONTIN [Concomitant]
     Indication: CANCER PAIN
     Dosage: 20 MG, Q12H
     Route: 048
  6. OXYCODONE HCL [Concomitant]
     Dosage: UNK, UNK
     Route: 065
  7. ATENOLOL [Concomitant]
     Indication: HYPERTENSION
     Dosage: UNK, QD
     Route: 048
     Dates: start: 20040104
  8. OXYCODONE HYDROCHLORIDE W/PARACETAMOL [Concomitant]
     Indication: CANCER PAIN
     Dosage: UNK, Q4HRS PRN
     Route: 048
  9. ZOMETA [Concomitant]
     Dosage: UNK
     Dates: start: 20091231, end: 20100128

REACTIONS (2)
  - CONCOMITANT DISEASE AGGRAVATED [None]
  - ESSENTIAL TREMOR [None]
